FAERS Safety Report 6393173-5 (Version None)
Quarter: 2009Q4

REPORT INFORMATION
  Report Type: 
  Country: None (occurrence: None)
  Receive Date: 20091008
  Receipt Date: 20091005
  Transmission Date: 20100525
  Serious: Yes (Other)
  Sender: FDA-Public Use
  Company Number: US-BAYER-200812420BCC

PATIENT
  Age: 68 Year
  Sex: Male
  Weight: 73 kg

DRUGS (8)
  1. ASPIRIN [Suspect]
     Indication: ISCHAEMIC HEART DISEASE PROPHYLAXIS
     Dosage: TOTAL DAILY DOSE: 81 MG  UNIT DOSE: 81 MG
     Route: 048
     Dates: start: 20080610, end: 20080610
  2. ASPIRIN [Suspect]
     Indication: ISCHAEMIC HEART DISEASE PROPHYLAXIS
     Dosage: TOTAL DAILY DOSE: 81 MG  UNIT DOSE: 81 MG
     Route: 048
     Dates: start: 20040101
  3. ASPIRIN [Suspect]
     Dosage: TOTAL DAILY DOSE: 81 MG  UNIT DOSE: 81 MG
     Route: 048
  4. DIOVAN [Concomitant]
  5. METAMUCIL [Concomitant]
  6. GAS X [Concomitant]
  7. CENTRUM [Concomitant]
  8. CLONAZEPAM [Concomitant]

REACTIONS (5)
  - COLONIC POLYP [None]
  - HEPATITIS C [None]
  - NOCTURIA [None]
  - PROSTATE CANCER [None]
  - RECTAL HAEMORRHAGE [None]
